FAERS Safety Report 8936341 (Version 2)
Quarter: 2013Q1

REPORT INFORMATION
  Report Type: Spontaneous
  Country: US (occurrence: US)
  Receive Date: 20121130
  Receipt Date: 20130228
  Transmission Date: 20140127
  Serious: No
  Sender: FDA-Public Use
  Company Number: US-ABBOTT-12P-163-1002262-00

PATIENT
  Age: 55 None
  Sex: Male
  Weight: 73.55 kg

DRUGS (7)
  1. ANDROGEL [Suspect]
     Indication: BLOOD TESTOSTERONE DECREASED
     Dates: start: 201203, end: 201205
  2. ANDROGEL [Suspect]
     Dates: start: 201205, end: 201206
  3. ANDROGEL [Suspect]
     Dates: start: 201206, end: 201208
  4. ANDROGEL [Suspect]
     Dates: start: 201208
  5. LOSARTAN [Concomitant]
     Indication: HYPERTENSION
  6. PROPECIA [Concomitant]
     Indication: ALOPECIA
  7. PROTONIX [Concomitant]
     Indication: IMPAIRED GASTRIC EMPTYING

REACTIONS (3)
  - Blood testosterone decreased [Recovering/Resolving]
  - Fatigue [Recovering/Resolving]
  - Drug ineffective [Not Recovered/Not Resolved]
